FAERS Safety Report 18566555 (Version 1)
Quarter: 2020Q4

REPORT INFORMATION
  Report Type: Spontaneous
  Country: DE (occurrence: DE)
  Receive Date: 20201201
  Receipt Date: 20201201
  Transmission Date: 20210114
  Serious: Yes (Hospitalization, Other)
  Sender: FDA-Public Use
  Company Number: NVSC2020DE315762

PATIENT
  Sex: Female
  Weight: 85 kg

DRUGS (3)
  1. METHOTREXATE. [Suspect]
     Active Substance: METHOTREXATE
     Indication: PRODUCT USED FOR UNKNOWN INDICATION
     Dosage: 22.5 MG, QW (PRE-FILLED SYRINGE)
     Route: 065
     Dates: start: 20080828
  2. COSENTYX [Suspect]
     Active Substance: SECUKINUMAB
     Indication: PRODUCT USED FOR UNKNOWN INDICATION
     Dosage: 150 MG, Q4W
     Route: 065
     Dates: start: 20200122, end: 2020
  3. METHYLPREDNISOLONE. [Suspect]
     Active Substance: METHYLPREDNISOLONE
     Indication: PRODUCT USED FOR UNKNOWN INDICATION
     Dosage: 4 MG, QD(1X1DF)
     Route: 065
     Dates: start: 20080828

REACTIONS (3)
  - Lumbar spinal stenosis [Recovered/Resolved]
  - Osteochondrosis [Unknown]
  - Vertebral foraminal stenosis [Unknown]
